FAERS Safety Report 7716752-9 (Version None)
Quarter: 2011Q3

REPORT INFORMATION
  Report Type: 
  Country: None (occurrence: None)
  Receive Date: 20110829
  Receipt Date: 20110818
  Transmission Date: 20111222
  Serious: Yes (Other)
  Sender: FDA-Public Use
  Company Number: US-ASTRAZENECA-2011SE50053

PATIENT
  Age: 15 Year
  Sex: Female

DRUGS (1)
  1. SEROQUEL XR [Suspect]
     Route: 048

REACTIONS (4)
  - SOMNOLENCE [None]
  - LOSS OF CONSCIOUSNESS [None]
  - DRUG EFFECT INCREASED [None]
  - ADVERSE DRUG REACTION [None]
